FAERS Safety Report 19232905 (Version 1)
Quarter: 2021Q2

REPORT INFORMATION
  Report Type: Report from Study
  Country: None (occurrence: US)
  Receive Date: 20210507
  Receipt Date: 20210507
  Transmission Date: 20210717
  Serious: Yes (Hospitalization)
  Sender: FDA-Public Use
  Company Number: US-ABBVIE-21K-163-3875822-00

PATIENT
  Sex: Male

DRUGS (1)
  1. HUMIRA [Suspect]
     Active Substance: ADALIMUMAB
     Indication: RHEUMATOID ARTHRITIS
     Route: 058

REACTIONS (5)
  - Rib fracture [Recovering/Resolving]
  - Clavicle fracture [Recovering/Resolving]
  - Bone contusion [Recovering/Resolving]
  - Skin laceration [Unknown]
  - Fall [Recovering/Resolving]
